FAERS Safety Report 24090982 (Version 1)
Quarter: 2024Q3

REPORT INFORMATION
  Report Type: Spontaneous
  Country: US (occurrence: US)
  Receive Date: 20240715
  Receipt Date: 20240715
  Transmission Date: 20241016
  Serious: No
  Sender: JOHNSON AND JOHNSON
  Company Number: US-JNJFOC-20240721744

PATIENT

DRUGS (7)
  1. TYLENOL [Suspect]
     Active Substance: ACETAMINOPHEN
     Indication: Headache
     Route: 065
  2. TYLENOL [Suspect]
     Active Substance: ACETAMINOPHEN
     Indication: Pyrexia
  3. TYLENOL [Suspect]
     Active Substance: ACETAMINOPHEN
     Indication: Pain
  4. TYLENOL [Suspect]
     Active Substance: ACETAMINOPHEN
     Indication: Arthralgia
  5. TYLENOL [Suspect]
     Active Substance: ACETAMINOPHEN
     Indication: Toothache
  6. TYLENOL [Suspect]
     Active Substance: ACETAMINOPHEN
     Indication: Procedural pain
  7. TYLENOL [Suspect]
     Active Substance: ACETAMINOPHEN
     Indication: Contusion

REACTIONS (1)
  - Drug ineffective [Unknown]
